FAERS Safety Report 8926048 (Version 1)
Quarter: 2012Q4

REPORT INFORMATION
  Report Type: 
  Country: DE (occurrence: DE)
  Receive Date: 20121126
  Receipt Date: 20121126
  Transmission Date: 20130627
  Serious: Yes (Congenital Anomaly, Other)
  Sender: FDA-Public Use
  Company Number: DE-MYLANLABS-2012S1023506

PATIENT
  Age: 0 Year
  Sex: Female
  Weight: 2.43 kg

DRUGS (1)
  1. CITALOPRAM [Suspect]
     Dosage: 5 [mg/d ]
     Route: 064

REACTIONS (8)
  - Talipes [Recovering/Resolving]
  - Foot deformity [Recovering/Resolving]
  - Atrial septal defect [Unknown]
  - Exposure during pregnancy [Recovered/Resolved]
  - Premature baby [Recovered/Resolved]
  - Ventricular extrasystoles [Recovered/Resolved]
  - Temperature regulation disorder [Unknown]
  - Hyperbilirubinaemia [Unknown]
